FAERS Safety Report 6061448-5 (Version None)
Quarter: 2009Q1

REPORT INFORMATION
  Report Type: 
  Country: None (occurrence: None)
  Receive Date: 20090129
  Receipt Date: 20090129
  Transmission Date: 20090719
  Serious: Yes (Life-Threatening)
  Sender: FDA-Public Use
  Company Number: None

PATIENT
  Sex: Male
  Weight: 97.5 kg

DRUGS (1)
  1. ENBREL [Suspect]
     Indication: PSORIASIS
     Dosage: 25 MG WEEKLY SQ
     Route: 058
     Dates: start: 20081201, end: 20090123

REACTIONS (4)
  - ASTHENIA [None]
  - HEADACHE [None]
  - PAIN IN EXTREMITY [None]
  - RESPIRATORY FAILURE [None]
